FAERS Safety Report 7809681-3 (Version None)
Quarter: 2011Q4

REPORT INFORMATION
  Report Type: 
  Country: None (occurrence: None)
  Receive Date: 20111012
  Receipt Date: 20111005
  Transmission Date: 20120403
  Serious: Yes (Other)
  Sender: FDA-Public Use
  Company Number: US-GLAXOSMITHKLINE-A0947558A

PATIENT
  Age: 67 Year
  Sex: Female

DRUGS (4)
  1. DYAZIDE [Suspect]
     Indication: FLUID RETENTION
     Dosage: 37.5MG PER DAY
     Route: 048
     Dates: start: 20100101
  2. CRESTOR [Concomitant]
  3. VITAMIN TAB [Concomitant]
  4. ATENOLOL [Concomitant]

REACTIONS (3)
  - FLUID RETENTION [None]
  - VASCULITIC RASH [None]
  - WEIGHT INCREASED [None]
